FAERS Safety Report 24296318 (Version 2)
Quarter: 2025Q3

REPORT INFORMATION
  Report Type: Spontaneous
  Country: US (occurrence: US)
  Receive Date: 20240909
  Receipt Date: 20250707
  Transmission Date: 20251021
  Serious: No
  Sender: AUROBINDO
  Company Number: US-AUROBINDO-AUR-APL-2024-029547

PATIENT

DRUGS (1)
  1. DORZOLAMIDE HYDROCHLORIDE\TIMOLOL MALEATE [Suspect]
     Active Substance: DORZOLAMIDE HYDROCHLORIDE\TIMOLOL MALEATE
     Indication: Product used for unknown indication
     Route: 065

REACTIONS (6)
  - Exercise tolerance decreased [Unknown]
  - Dyspnoea [Unknown]
  - Drug ineffective [Unknown]
  - Product substitution issue [Unknown]
  - Product closure issue [Unknown]
  - Product packaging issue [Unknown]
